FAERS Safety Report 5338717-7 (Version None)
Quarter: 2007Q2

REPORT INFORMATION
  Report Type: 
  Country: None (occurrence: None)
  Receive Date: 20070530
  Receipt Date: 20070529
  Transmission Date: 20071010
  Serious: Yes (Other)
  Sender: FDA-Public Use
  Company Number: B0470801A

PATIENT
  Age: 10 Year
  Sex: Female
  Weight: 23.3 kg

DRUGS (5)
  1. RELENZA [Suspect]
     Dosage: 10MG TWICE PER DAY
     Route: 055
     Dates: start: 20070509, end: 20070513
  2. ASVERIN [Concomitant]
     Indication: COUGH
     Route: 048
     Dates: start: 20070509, end: 20070513
  3. PERIACTIN [Concomitant]
     Indication: COUGH
     Route: 048
     Dates: start: 20070509, end: 20070513
  4. UNKNOWN MEDICATION [Concomitant]
     Indication: COUGH
     Route: 048
     Dates: start: 20070509, end: 20070513
  5. UNKNOWN MEDICATION [Concomitant]
     Route: 048
     Dates: start: 20070509, end: 20070513

REACTIONS (5)
  - ABNORMAL BEHAVIOUR [None]
  - COGNITIVE DISORDER [None]
  - DEPRESSED LEVEL OF CONSCIOUSNESS [None]
  - FEELING ABNORMAL [None]
  - RESTLESSNESS [None]
